FAERS Safety Report 24986183 (Version 1)
Quarter: 2025Q1

REPORT INFORMATION
  Report Type: Report from Study
  Country: US (occurrence: US)
  Receive Date: 20250219
  Receipt Date: 20250219
  Transmission Date: 20250409
  Serious: Yes (Other)
  Sender: ALNYLAM PHARMACEUTICALS
  Company Number: US-ALNYLAM PHARMACEUTICALS, INC.-ALN-2025-000998

PATIENT

DRUGS (1)
  1. GIVLAARI [Suspect]
     Active Substance: GIVOSIRAN SODIUM
     Indication: Porphyria acute
     Dosage: 241.98 MILLIGRAM, MONTHLY
     Route: 058
     Dates: start: 20240117, end: 20240117

REACTIONS (9)
  - Suicidal ideation [Unknown]
  - Loss of consciousness [Unknown]
  - Porphyria acute [Unknown]
  - Blood glucose fluctuation [Unknown]
  - Stress [Unknown]
  - Depression [Unknown]
  - Insomnia [Unknown]
  - Hypoaesthesia [Unknown]
  - Tremor [Unknown]

NARRATIVE: CASE EVENT DATE: 20250211
